FAERS Safety Report 10168557 (Version 2)
Quarter: 2014Q2

REPORT INFORMATION
  Report Type: Spontaneous
  Country: JP (occurrence: JP)
  Receive Date: 20140513
  Receipt Date: 20140515
  Transmission Date: 20141212
  Serious: Yes (Other)
  Sender: FDA-Public Use
  Company Number: JP-009507513-1405JPN005232

PATIENT
  Age: 78 Year
  Sex: Male

DRUGS (3)
  1. DEXAMETHASONE [Suspect]
  2. DOCETAXEL [Concomitant]
     Route: 041
  3. ZOLEDRONIC ACID [Concomitant]
     Route: 041

REACTIONS (2)
  - Pneumonia [Unknown]
  - Pyrexia [Unknown]
